FAERS Safety Report 7820434-2 (Version None)
Quarter: 2011Q4

REPORT INFORMATION
  Report Type: 
  Country: None (occurrence: None)
  Receive Date: 20111018
  Receipt Date: 20111010
  Transmission Date: 20120403
  Serious: Yes (Death, Other)
  Sender: FDA-Public Use
  Company Number: US-ROCHE-1003935

PATIENT

DRUGS (4)
  1. XELODA [Suspect]
     Indication: HEPATIC NEOPLASM MALIGNANT
     Dosage: DAYS 1-14
  2. CETUXIMAB [Suspect]
     Indication: HEPATIC NEOPLASM MALIGNANT
     Dosage: DAY 1
  3. OXALIPLATIN [Suspect]
     Indication: HEPATIC NEOPLASM MALIGNANT
     Dosage: DAY 1
  4. CETUXIMAB [Suspect]
     Dosage: 21 DAY CYCLE

REACTIONS (3)
  - DEATH [None]
  - DIARRHOEA [None]
  - FATIGUE [None]
